APPROVED DRUG PRODUCT: ERYTHROMYCIN
Active Ingredient: ERYTHROMYCIN
Strength: 5MG/GM
Dosage Form/Route: OINTMENT;OPHTHALMIC
Application: A062446 | Product #001
Applicant: PHARMADERM DIV ALTANA INC
Approved: Sep 26, 1983 | RLD: No | RS: No | Type: DISCN